FAERS Safety Report 24946786 (Version 1)
Quarter: 2025Q1

REPORT INFORMATION
  Report Type: Spontaneous
  Country: SG (occurrence: SG)
  Receive Date: 20250210
  Receipt Date: 20250210
  Transmission Date: 20250408
  Serious: Yes (Hospitalization, Other)
  Sender: PANACEA BIOTEC PHARMA LIMITED
  Company Number: SG-PBT-010111

PATIENT
  Age: 49 Year
  Sex: Female

DRUGS (15)
  1. TACROLIMUS [Suspect]
     Active Substance: TACROLIMUS
     Indication: Thymoma
     Route: 048
     Dates: start: 202204, end: 202204
  2. MYCOPHENOLATE MOFETIL [Suspect]
     Active Substance: MYCOPHENOLATE MOFETIL
     Indication: Thymoma
     Route: 048
     Dates: start: 202201, end: 202204
  3. BORTEZOMIB [Suspect]
     Active Substance: BORTEZOMIB
     Indication: Thymoma
     Route: 058
     Dates: start: 202204, end: 202206
  4. BARICITINIB [Suspect]
     Active Substance: BARICITINIB
     Indication: Thymoma
     Route: 048
     Dates: start: 202203, end: 202204
  5. RITUXIMAB [Suspect]
     Active Substance: RITUXIMAB
     Indication: Thymoma
     Route: 042
     Dates: start: 202201, end: 202204
  6. IMMUNE GLOBULIN NOS [Suspect]
     Active Substance: IMMUNE GLOBULIN NOS
     Indication: Thymoma
     Route: 042
     Dates: start: 202201, end: 202205
  7. PREDNISOLONE [Suspect]
     Active Substance: PREDNISOLONE
     Indication: Thymoma
     Route: 048
     Dates: start: 202112, end: 202202
  8. IMMUNE GLOBULIN NOS [Suspect]
     Active Substance: IMMUNE GLOBULIN NOS
     Indication: Autoimmune retinopathy
     Route: 042
     Dates: start: 202201, end: 202205
  9. PREDNISOLONE [Suspect]
     Active Substance: PREDNISOLONE
     Indication: Autoimmune retinopathy
     Route: 048
     Dates: start: 202112, end: 202202
  10. BORTEZOMIB [Suspect]
     Active Substance: BORTEZOMIB
     Indication: Autoimmune retinopathy
     Route: 058
     Dates: start: 202204, end: 202206
  11. RITUXIMAB [Suspect]
     Active Substance: RITUXIMAB
     Indication: Autoimmune retinopathy
     Route: 042
     Dates: start: 202201, end: 202204
  12. RITUXIMAB [Suspect]
     Active Substance: RITUXIMAB
     Indication: Thymoma
     Route: 042
     Dates: start: 202201, end: 202204
  13. RITUXIMAB [Suspect]
     Active Substance: RITUXIMAB
     Indication: Autoimmune retinopathy
     Route: 042
     Dates: start: 202201, end: 202204
  14. MYCOPHENOLATE MOFETIL [Suspect]
     Active Substance: MYCOPHENOLATE MOFETIL
     Indication: Autoimmune retinopathy
     Route: 048
     Dates: start: 202201, end: 202204
  15. TACROLIMUS [Suspect]
     Active Substance: TACROLIMUS
     Indication: Autoimmune retinopathy
     Route: 048
     Dates: start: 202204, end: 202204

REACTIONS (4)
  - Drug ineffective [Unknown]
  - Autoimmune retinopathy [Recovered/Resolved]
  - Disease progression [Recovered/Resolved]
  - Product use in unapproved indication [Unknown]

NARRATIVE: CASE EVENT DATE: 20220101
